FAERS Safety Report 13703397 (Version 4)
Quarter: 2018Q1

REPORT INFORMATION
  Report Type: Report from Study
  Country: BE (occurrence: BE)
  Receive Date: 20170629
  Receipt Date: 20180123
  Transmission Date: 20180508
  Serious: Yes (Other)
  Sender: FDA-Public Use
  Company Number: BE-DSJP-DSE-2017-119958

PATIENT

DRUGS (3)
  1. EDOXABAN [Suspect]
     Active Substance: EDOXABAN TOSYLATE
     Indication: EMBOLISM VENOUS
     Dosage: 60 MG, QD
     Route: 048
     Dates: start: 20170131
  2. RAMIPRIL. [Suspect]
     Active Substance: RAMIPRIL
     Indication: HYPERTENSION
     Dosage: UNK
  3. LIPANTHYL [Suspect]
     Active Substance: FENOFIBRATE
     Indication: HYPERCHOLESTEROLAEMIA
     Dosage: UNK

REACTIONS (2)
  - Eczema [Recovered/Resolved]
  - Eczema [Not Recovered/Not Resolved]

NARRATIVE: CASE EVENT DATE: 20170401
